FAERS Safety Report 18141518 (Version 8)
Quarter: 2021Q3

REPORT INFORMATION
  Report Type: Report from Study
  Country: US (occurrence: US)
  Receive Date: 20200812
  Receipt Date: 20210815
  Transmission Date: 20211014
  Serious: Yes (Hospitalization)
  Sender: FDA-Public Use
  Company Number: NVSC2020US221600

PATIENT
  Age: 79 Year
  Sex: Female

DRUGS (7)
  1. WARFARIN [Suspect]
     Active Substance: WARFARIN
     Indication: PRODUCT USED FOR UNKNOWN INDICATION
     Dosage: UNK
     Route: 065
     Dates: start: 201007, end: 202107
  2. CARVEDILOL. [Suspect]
     Active Substance: CARVEDILOL
     Dosage: 12.5 MG, BID
     Route: 065
  3. AMIODARONE [Suspect]
     Active Substance: AMIODARONE
     Indication: PRODUCT USED FOR UNKNOWN INDICATION
     Dosage: UNK
     Route: 065
     Dates: start: 202107, end: 202107
  4. CARVEDILOL. [Suspect]
     Active Substance: CARVEDILOL
     Indication: PRODUCT USED FOR UNKNOWN INDICATION
     Dosage: 12.5 MG, BID
     Route: 065
  5. ENTRESTO [Suspect]
     Active Substance: SACUBITRIL\VALSARTAN
     Indication: CARDIAC FAILURE
     Dosage: 50 MG, (24.26 MG), BID
     Route: 048
     Dates: start: 201912, end: 20200814
  6. ENTRESTO [Suspect]
     Active Substance: SACUBITRIL\VALSARTAN
     Dosage: 50 MG, (24.26 MG), BID
     Route: 048
  7. CARVEDILOL. [Suspect]
     Active Substance: CARVEDILOL
     Dosage: 0.5 DF
     Route: 065

REACTIONS (25)
  - Pleural effusion [Unknown]
  - Weight increased [Unknown]
  - Muscular weakness [Unknown]
  - Fluid retention [Unknown]
  - Product dose omission issue [Recovering/Resolving]
  - Hypernatraemia [Unknown]
  - Decreased appetite [Unknown]
  - Sleep disorder [Not Recovered/Not Resolved]
  - Asthenia [Unknown]
  - Gait disturbance [Unknown]
  - Panic reaction [Recovering/Resolving]
  - Ejection fraction decreased [Unknown]
  - Sinus disorder [Unknown]
  - Pain in extremity [Recovering/Resolving]
  - Cough [Unknown]
  - Inappropriate schedule of product administration [Recovering/Resolving]
  - Hypersomnia [Unknown]
  - Stress [Unknown]
  - Weight decreased [Recovering/Resolving]
  - Fatigue [Unknown]
  - Dyspnoea exertional [Unknown]
  - Dyspnoea [Unknown]
  - Throat clearing [Unknown]
  - Gastric disorder [Unknown]
  - Depression [Not Recovered/Not Resolved]

NARRATIVE: CASE EVENT DATE: 201912
